FAERS Safety Report 22767093 (Version 5)
Quarter: 2023Q4

REPORT INFORMATION
  Report Type: Spontaneous
  Country: US (occurrence: US)
  Receive Date: 20230731
  Receipt Date: 20231121
  Transmission Date: 20240110
  Serious: Yes (Hospitalization, Other)
  Sender: FDA-Public Use
  Company Number: US-PFIZER INC-PV202200063118

PATIENT
  Age: 78 Year
  Sex: Male
  Weight: 77.11 kg

DRUGS (3)
  1. VYNDAMAX [Suspect]
     Active Substance: TAFAMIDIS
     Indication: Cardiac amyloidosis
     Dosage: 61 MG
  2. VYNDAMAX [Suspect]
     Active Substance: TAFAMIDIS
     Indication: Amyloidosis
     Dosage: 61 MG, 1X/DAY (EVERY MORNING)
     Route: 048
     Dates: end: 2022
  3. VYNDAMAX [Suspect]
     Active Substance: TAFAMIDIS
     Dosage: 61 MG

REACTIONS (8)
  - Epistaxis [Unknown]
  - Calculus urinary [Unknown]
  - Rhinorrhoea [Unknown]
  - Nasal discomfort [Unknown]
  - Dyspnoea [Unknown]
  - Pneumonia [Not Recovered/Not Resolved]
  - Weight decreased [Unknown]
  - Product dose omission issue [Unknown]

NARRATIVE: CASE EVENT DATE: 20220101
